FAERS Safety Report 5191800-1 (Version None)
Quarter: 2006Q4

REPORT INFORMATION
  Report Type: 
  Country: None (occurrence: None)
  Receive Date: 20061227
  Receipt Date: 20061218
  Transmission Date: 20070319
  Serious: Yes (Life-Threatening, Hospitalization)
  Sender: FDA-Public Use
  Company Number: NL-JNJFOC-20060903407

PATIENT
  Sex: Male
  Weight: 70 kg

DRUGS (8)
  1. INFLIXIMAB, RECOMBINANT [Suspect]
     Indication: RHEUMATOID ARTHRITIS
     Route: 042
  2. METHOTREXATE [Concomitant]
     Indication: RHEUMATOID ARTHRITIS
     Route: 065
  3. FOLIC ACID [Concomitant]
     Indication: RHEUMATOID ARTHRITIS
     Route: 065
  4. ASCAL [Concomitant]
     Route: 065
  5. PLAVIZ [Concomitant]
     Indication: ANGINA PECTORIS
     Route: 065
  6. SELOKEN [Concomitant]
     Indication: HYPERTENSION
     Route: 065
  7. ISORDIL [Concomitant]
     Indication: ANGINA PECTORIS
     Route: 065
  8. SELENTINE [Concomitant]
     Indication: HYPERCHOLESTEROLAEMIA
     Route: 065

REACTIONS (4)
  - PAPILLARY TUMOUR OF RENAL PELVIS [None]
  - POSTOPERATIVE ILEUS [None]
  - RENAL CELL CARCINOMA STAGE UNSPECIFIED [None]
  - TRANSITIONAL CELL CARCINOMA [None]
